FAERS Safety Report 5514100-6 (Version None)
Quarter: 2007Q4

REPORT INFORMATION
  Report Type: 
  Country: None (occurrence: None)
  Receive Date: 20071113
  Receipt Date: 20071105
  Transmission Date: 20080405
  Serious: Yes (Death)
  Sender: FDA-Public Use
  Company Number: US-JNJFOC-20070102959

PATIENT
  Sex: Male
  Weight: 115.67 kg

DRUGS (9)
  1. DURAGESIC-100 [Suspect]
     Route: 062
  2. DURAGESIC-100 [Suspect]
     Route: 062
  3. DURAGESIC-100 [Suspect]
     Route: 062
  4. DURAGESIC-100 [Suspect]
     Indication: PAIN
     Route: 062
  5. HYDROCODONE BITARTRATE AND ACETAMINOPHEN [Suspect]
     Indication: PAIN
     Route: 048
  6. LIDODERM [Concomitant]
  7. AMBIEN [Concomitant]
  8. VALIUM [Concomitant]
  9. ELAVIL [Concomitant]

REACTIONS (2)
  - DEVICE FAILURE [None]
  - NARCOTIC INTOXICATION [None]
